FAERS Safety Report 10734562 (Version 3)
Quarter: 2015Q3

REPORT INFORMATION
  Report Type: Report from Study
  Country: US (occurrence: US)
  Receive Date: 20150123
  Receipt Date: 20150722
  Transmission Date: 20151125
  Serious: No
  Sender: FDA-Public Use
  Company Number: US-AMGEN INC.-2014-2257

PATIENT
  Age: 69 Year

DRUGS (2)
  1. DOXORUBICIN [Concomitant]
     Active Substance: DOXORUBICIN
     Indication: PLASMA CELL MYELOMA
     Dosage: 59 UNK, QMO
     Route: 042
     Dates: start: 20131112, end: 20131217
  2. KYPROLIS [Suspect]
     Active Substance: CARFILZOMIB
     Indication: PLASMA CELL MYELOMA
     Dosage: 110 UNK, 2 TIMES/WK
     Route: 042
     Dates: start: 20131105, end: 20131217

REACTIONS (1)
  - Transfusion reaction [Unknown]

NARRATIVE: CASE EVENT DATE: 20131217
